FAERS Safety Report 7403255-4 (Version None)
Quarter: 2011Q2

REPORT INFORMATION
  Report Type: 
  Country: None (occurrence: None)
  Receive Date: 20110408
  Receipt Date: 20110330
  Transmission Date: 20111010
  Serious: Yes (Other)
  Sender: FDA-Public Use
  Company Number: US-ASTRAZENECA-2011SE18523

PATIENT
  Age: 50 Year
  Sex: Female

DRUGS (2)
  1. ACIPHEX [Concomitant]
  2. NEXIUM [Suspect]
     Route: 048

REACTIONS (4)
  - COLITIS [None]
  - GASTROINTESTINAL ULCER HAEMORRHAGE [None]
  - MALAISE [None]
  - DRUG DOSE OMISSION [None]
